FAERS Safety Report 26120543 (Version 1)
Quarter: 2025Q4

REPORT INFORMATION
  Report Type: Spontaneous
  Country: EU (occurrence: EU)
  Receive Date: 20251204
  Receipt Date: 20251204
  Transmission Date: 20260117
  Serious: Yes (Hospitalization)
  Sender: TEVA
  Company Number: None

PATIENT
  Age: 29 Year
  Sex: Female
  Weight: 66.5 kg

DRUGS (3)
  1. IBUPROFEN [Suspect]
     Active Substance: IBUPROFEN
     Indication: Toothache
     Dosage: TIME INTERVAL: TOTAL
     Route: 048
     Dates: start: 20250920, end: 20250922
  2. DAFALGAN CODEINE [Suspect]
     Active Substance: ACETAMINOPHEN\CODEINE PHOSPHATE
     Indication: Toothache
     Dosage: TIME INTERVAL: TOTAL
     Route: 048
     Dates: start: 20250920, end: 20250922
  3. DOLIPRANE [Suspect]
     Active Substance: ACETAMINOPHEN
     Indication: Toothache
     Dosage: TIME INTERVAL: TOTAL
     Route: 048
     Dates: start: 20250920, end: 20250922

REACTIONS (2)
  - Vomiting [Recovered/Resolved]
  - Transaminases increased [Recovered/Resolved]

NARRATIVE: CASE EVENT DATE: 20250922
